FAERS Safety Report 5676173-X (Version None)
Quarter: 2008Q1

REPORT INFORMATION
  Report Type: 
  Country: None (occurrence: None)
  Receive Date: 20080321
  Receipt Date: 20080313
  Transmission Date: 20080703
  Serious: Yes (Hospitalization)
  Sender: FDA-Public Use
  Company Number: GB-BAYER-200810403BNE

PATIENT
  Age: 81 Year
  Sex: Male

DRUGS (3)
  1. MABCAMPATH [Suspect]
     Indication: CHRONIC LYMPHOCYTIC LEUKAEMIA
     Route: 058
     Dates: start: 20071001, end: 20071102
  2. ACYCLOVIR [Concomitant]
     Dosage: UNIT DOSE: 400 MG
     Route: 048
     Dates: start: 20071001
  3. COTRIMOXAZOLE [Concomitant]
     Route: 048
     Dates: start: 20071001

REACTIONS (1)
  - AUTOIMMUNE THROMBOCYTOPENIA [None]
